FAERS Safety Report 5536949-6 (Version None)
Quarter: 2007Q4

REPORT INFORMATION
  Report Type: 
  Country: None (occurrence: None)
  Receive Date: 20071207
  Receipt Date: 20071203
  Transmission Date: 20080405
  Serious: Yes (Hospitalization)
  Sender: FDA-Public Use
  Company Number: PHNU2007DE04034

PATIENT
  Sex: Female

DRUGS (3)
  1. CO-DIOVAN FORTE [Suspect]
     Indication: HYPERTENSION
     Dosage: 1 DF, QD
     Dates: start: 20030101
  2. ALLOPURINOL [Concomitant]
     Dates: start: 20071101
  3. ALLERGY MEDICATION [Concomitant]
     Indication: MULTIPLE ALLERGIES

REACTIONS (5)
  - BLOOD CREATINE PHOSPHOKINASE INCREASED [None]
  - EYELID OEDEMA [None]
  - HYPERSENSITIVITY [None]
  - MUSCLE DISORDER [None]
  - MUSCLE RIGIDITY [None]
